FAERS Safety Report 25207931 (Version 1)
Quarter: 2025Q2

REPORT INFORMATION
  Report Type: Spontaneous
  Country: DE (occurrence: DE)
  Receive Date: 20250417
  Receipt Date: 20250417
  Transmission Date: 20250717
  Serious: Yes (Hospitalization, Other)
  Sender: B BRAUN
  Company Number: DE-B.Braun Medical Inc.-2175033

PATIENT
  Age: 23 Year
  Sex: Female
  Weight: 55 kg

DRUGS (8)
  1. ACETAMINOPHEN [Suspect]
     Active Substance: ACETAMINOPHEN
  2. ALCOHOL [Suspect]
     Active Substance: ALCOHOL
  3. CLINDAMYCIN HYDROCHLORIDE [Suspect]
     Active Substance: CLINDAMYCIN HYDROCHLORIDE
  4. ASCORBIC ACID\CETYLPYRIDINIUM CHLORIDE\DEQUALINIUM CHLORIDE\HESPERIDIN [Suspect]
     Active Substance: ASCORBIC ACID\CETYLPYRIDINIUM CHLORIDE\DEQUALINIUM CHLORIDE\HESPERIDIN METHYLCHALCONE
  5. UNSPECIFIED INGREDIENT [Suspect]
     Active Substance: UNSPECIFIED INGREDIENT
  6. NOVALGIN (METAMIZOLE SODIUM) [Suspect]
     Active Substance: METAMIZOLE SODIUM
  7. MINOCYCLINE HYDROCHLORIDE [Suspect]
     Active Substance: MINOCYCLINE HYDROCHLORIDE
  8. DOXYCYCLINE [Suspect]
     Active Substance: DOXYCYCLINE

REACTIONS (3)
  - Overdose [Unknown]
  - Suicide attempt [Unknown]
  - Conversion disorder [Unknown]
